FAERS Safety Report 6507294-7 (Version None)
Quarter: 2009Q4

REPORT INFORMATION
  Report Type: 
  Country: None (occurrence: None)
  Receive Date: 20091221
  Receipt Date: 20091216
  Transmission Date: 20100525
  Serious: Yes (Life-Threatening, Other)
  Sender: FDA-Public Use
  Company Number: PHHY2009BR56222

PATIENT
  Sex: Male

DRUGS (1)
  1. DIOVAN AMLO FIX [Suspect]

REACTIONS (9)
  - APHONIA [None]
  - APPARENT DEATH [None]
  - BLOOD PRESSURE INCREASED [None]
  - BRONCHITIS [None]
  - PYREXIA [None]
  - URINARY INCONTINENCE [None]
  - VISUAL IMPAIRMENT [None]
  - VOMITING [None]
  - WEIGHT DECREASED [None]
